FAERS Safety Report 23874586 (Version 1)
Quarter: 2024Q2

REPORT INFORMATION
  Report Type: Spontaneous
  Country: US (occurrence: None)
  Receive Date: 20240520
  Receipt Date: 20240520
  Transmission Date: 20240716
  Serious: Yes (Hospitalization)
  Sender: FDA-Public Use
  Company Number: None

PATIENT
  Age: 70 Year
  Sex: Female

DRUGS (3)
  1. AMBRISENTAN [Suspect]
     Active Substance: AMBRISENTAN
     Indication: Pulmonary arterial hypertension
     Dosage: FREQUENCY : DAILY;?
     Route: 048
     Dates: start: 202003
  2. ORENITRAMER [Concomitant]
  3. ADEVIPAS [Concomitant]

REACTIONS (2)
  - COVID-19 pneumonia [None]
  - Fatigue [None]

NARRATIVE: CASE EVENT DATE: 20240417
